FAERS Safety Report 7901877-5 (Version None)
Quarter: 2011Q4

REPORT INFORMATION
  Report Type: 
  Country: None (occurrence: None)
  Receive Date: 20111108
  Receipt Date: 20111103
  Transmission Date: 20120403
  Serious: Yes (Hospitalization, Disabling, Other)
  Sender: FDA-Public Use
  Company Number: US-MERCK-1107USA03601

PATIENT
  Sex: Female

DRUGS (3)
  1. FOSAMAX [Suspect]
     Indication: OSTEOPOROSIS
     Route: 048
     Dates: start: 19980401, end: 20001001
  2. BONIVA [Suspect]
     Indication: OSTEOPOROSIS
     Route: 048
     Dates: start: 20080901, end: 20100101
  3. FOSAMAX [Suspect]
     Route: 048
     Dates: start: 20001101, end: 20080801

REACTIONS (9)
  - ORAL DISORDER [None]
  - OSTEOMYELITIS [None]
  - ORAL INFECTION [None]
  - ORAL TORUS [None]
  - FISTULA DISCHARGE [None]
  - ABSCESS [None]
  - TOOTH DISORDER [None]
  - TEMPOROMANDIBULAR JOINT SYNDROME [None]
  - OSTEONECROSIS OF JAW [None]
